FAERS Safety Report 9725323 (Version 1)
Quarter: 2013Q4

REPORT INFORMATION
  Report Type: Spontaneous
  Country: IT (occurrence: IT)
  Receive Date: 20131203
  Receipt Date: 20131203
  Transmission Date: 20140711
  Serious: Yes (Other)
  Sender: FDA-Public Use
  Company Number: IT-MYLANLABS-2013S1026417

PATIENT
  Age: 69 Year
  Sex: Female
  Weight: 58 kg

DRUGS (3)
  1. IRINOTECAN [Suspect]
     Indication: RECTAL ADENOCARCINOMA
     Dosage: CYCLIC
     Route: 042
     Dates: start: 20130222, end: 20130817
  2. LEVOFOLINIC ACID [Suspect]
     Indication: RECTAL ADENOCARCINOMA
     Dosage: CYCLIC
     Route: 042
     Dates: start: 20130222, end: 20130817
  3. FLUOROURACIL [Suspect]
     Indication: RECTAL ADENOCARCINOMA
     Dosage: CYCLIC
     Route: 042

REACTIONS (4)
  - Epistaxis [Unknown]
  - Neutropenia [Unknown]
  - Oedema [Unknown]
  - Vomiting [Unknown]
